FAERS Safety Report 14015896 (Version 1)
Quarter: 2017Q3

REPORT INFORMATION
  Report Type: Spontaneous
  Country: US (occurrence: None)
  Receive Date: 20170927
  Receipt Date: 20170927
  Transmission Date: 20171128
  Serious: Yes (Life-Threatening)
  Sender: FDA-Public Use
  Company Number: None

PATIENT
  Age: 57 Year
  Sex: Female
  Weight: 62.6 kg

DRUGS (9)
  1. FLUTICASONE PROPIONATE. [Concomitant]
     Active Substance: FLUTICASONE PROPIONATE
  2. TRULICITY [Suspect]
     Active Substance: DULAGLUTIDE
     Indication: DIABETES MELLITUS
     Dates: start: 20170823, end: 20170830
  3. BRILINTA [Concomitant]
     Active Substance: TICAGRELOR
  4. ATORVASTATIN [Concomitant]
     Active Substance: ATORVASTATIN
  5. GLIPIZIDE. [Concomitant]
     Active Substance: GLIPIZIDE
  6. RANITIDINE. [Concomitant]
     Active Substance: RANITIDINE
  7. METOPROL TAR [Concomitant]
  8. LISINOPRIL. [Concomitant]
     Active Substance: LISINOPRIL
  9. BABY ASPIRIN [Concomitant]
     Active Substance: ASPIRIN

REACTIONS (14)
  - Abdominal pain upper [None]
  - Expired product administered [None]
  - Dizziness [None]
  - Blood glucose decreased [None]
  - Asthenia [None]
  - Tremor [None]
  - Abdominal distension [None]
  - Abdominal discomfort [None]
  - Hyperhidrosis [None]
  - Urine output decreased [None]
  - Dyspepsia [None]
  - Back pain [None]
  - Infrequent bowel movements [None]
  - Decreased appetite [None]

NARRATIVE: CASE EVENT DATE: 20170823
